FAERS Safety Report 6671271-6 (Version None)
Quarter: 2010Q2

REPORT INFORMATION
  Report Type: 
  Country: None (occurrence: None)
  Receive Date: 20100407
  Receipt Date: 20100323
  Transmission Date: 20101027
  Serious: Yes (Other)
  Sender: FDA-Public Use
  Company Number: US-ROCHE-680875

PATIENT
  Sex: Female
  Weight: 42.2 kg

DRUGS (10)
  1. XELODA [Suspect]
     Indication: NEUROENDOCRINE TUMOUR
     Dosage: 03 WEEKS ON AND 01 WEEK OFF
     Route: 048
     Dates: start: 20090701, end: 20091231
  2. XELODA [Suspect]
     Route: 048
     Dates: start: 20100114
  3. XELODA [Suspect]
     Dosage: 2 WEEK ON 1 WEEK OFF
     Route: 048
  4. TEMODAR [Suspect]
     Indication: NEUROENDOCRINE TUMOUR
     Dosage: FIVE DAYS OUT OF THE MONTH
     Route: 065
     Dates: start: 20090601
  5. HYZAAR [Suspect]
     Indication: DRUG USE FOR UNKNOWN INDICATION
     Dosage: STOPPED FOR 10 DAYS.
     Route: 065
  6. HYZAAR [Suspect]
     Route: 065
  7. DETROL LA [Concomitant]
  8. SIMVASTATIN [Concomitant]
  9. CALCIUM [Concomitant]
  10. VITAMIN B-12 [Concomitant]

REACTIONS (4)
  - DRY EYE [None]
  - HYPOTENSION [None]
  - PALMAR-PLANTAR ERYTHRODYSAESTHESIA SYNDROME [None]
  - WEIGHT DECREASED [None]
